FAERS Safety Report 23368411 (Version 1)
Quarter: 2024Q1

REPORT INFORMATION
  Report Type: Spontaneous
  Country: US (occurrence: US)
  Receive Date: 20240105
  Receipt Date: 20240105
  Transmission Date: 20240410
  Serious: Yes (Other)
  Sender: FDA-Public Use
  Company Number: US-AUROBINDO-AUR-APL-2023-081735

PATIENT
  Age: 36 Year
  Sex: Male

DRUGS (2)
  1. CLOBETASOL PROPIONATE [Suspect]
     Active Substance: CLOBETASOL PROPIONATE
     Indication: Lichen sclerosus
     Dosage: UNK
     Route: 061
     Dates: start: 2022
  2. TACROLIMUS [Concomitant]
     Active Substance: TACROLIMUS
     Indication: Lichen sclerosus
     Dosage: UNK
     Route: 065
     Dates: start: 2022

REACTIONS (3)
  - Central serous chorioretinopathy [Recovered/Resolved]
  - Vision blurred [Recovered/Resolved]
  - Visual impairment [Recovered/Resolved]

NARRATIVE: CASE EVENT DATE: 20220101
